FAERS Safety Report 5071949-4 (Version None)
Quarter: 2006Q3

REPORT INFORMATION
  Report Type: 
  Country: None (occurrence: None)
  Receive Date: 20060804
  Receipt Date: 20060727
  Transmission Date: 20061208
  Serious: Yes (Hospitalization)
  Sender: FDA-Public Use
  Company Number: FR-ABBOTT-06P-056-0339120-00

PATIENT
  Age: 72 Year
  Sex: Female

DRUGS (2)
  1. DEPAKENE [Suspect]
     Indication: EPILEPSY
     Route: 048
     Dates: start: 20050301, end: 20051206
  2. GAVISCON [Concomitant]
     Indication: DRUG USE FOR UNKNOWN INDICATION
     Route: 048

REACTIONS (9)
  - BLOOD ALKALINE PHOSPHATASE INCREASED [None]
  - CHOLESTASIS [None]
  - DISORIENTATION [None]
  - ENCEPHALOPATHY [None]
  - MEMORY IMPAIRMENT [None]
  - PERSEVERATION [None]
  - PNEUMONIA ASPIRATION [None]
  - SOMNOLENCE [None]
  - STATUS EPILEPTICUS [None]
